FAERS Safety Report 20390865 (Version 1)
Quarter: 2022Q1

REPORT INFORMATION
  Report Type: Spontaneous
  Country: NO (occurrence: NO)
  Receive Date: 20220128
  Receipt Date: 20220128
  Transmission Date: 20220424
  Serious: Yes (Hospitalization, Other)
  Sender: FDA-Public Use
  Company Number: NO-ELI_LILLY_AND_COMPANY-NO202201008840

PATIENT
  Age: 26 Year
  Sex: Male

DRUGS (7)
  1. ZYPREXA [Suspect]
     Active Substance: OLANZAPINE
     Indication: Mania
     Dosage: 20 MG, DAILY
     Route: 048
     Dates: start: 20211103, end: 20211214
  2. VALPROIC ACID [Suspect]
     Active Substance: VALPROIC ACID
     Indication: Mania
     Dosage: 2400-3000 MG, DAILY
     Route: 048
     Dates: start: 20180101
  3. QUETIAPINE [Suspect]
     Active Substance: QUETIAPINE
     Indication: Mania
     Dosage: 100 MG, BID
     Route: 048
     Dates: start: 20211211, end: 20211214
  4. ZUCLOPENTHIXOL ACETATE [Suspect]
     Active Substance: ZUCLOPENTHIXOL ACETATE
     Indication: Mania
     Dosage: 150 MG INJECTION ONCE, THEN 100 MG INJECTION 2 DAYS LATER
     Route: 030
     Dates: start: 20211214, end: 20211216
  5. ZUCLOPENTHIXOL ACETATE [Suspect]
     Active Substance: ZUCLOPENTHIXOL ACETATE
     Indication: Mania
     Dosage: 10 MG, BID
     Route: 048
     Dates: start: 202112, end: 20220113
  6. HALDOL [Suspect]
     Active Substance: HALOPERIDOL
     Indication: Mania
     Dosage: 10 MG, DAILY (DOSE UP TO MAXIMUM 12 MG/DAY)
     Route: 030
     Dates: start: 20211211, end: 20211214
  7. DIAZEPAM [Concomitant]
     Active Substance: DIAZEPAM
     Indication: Product used for unknown indication
     Dosage: 60-70 MG, DAILY

REACTIONS (2)
  - Chest pain [Recovered/Resolved]
  - Pulmonary embolism [Recovered/Resolved]

NARRATIVE: CASE EVENT DATE: 20211219
